FAERS Safety Report 8165507-2 (Version None)
Quarter: 2012Q1

REPORT INFORMATION
  Report Type: 
  Country: None (occurrence: None)
  Receive Date: 20120227
  Receipt Date: 20120217
  Transmission Date: 20120608
  Serious: No
  Sender: FDA-Public Use
  Company Number: US-BAYER-2012-018514

PATIENT
  Age: 50 Year
  Sex: Female

DRUGS (2)
  1. GADAVIST [Suspect]
     Indication: NUCLEAR MAGNETIC RESONANCE IMAGING
     Dosage: 8 ML, ONCE
     Route: 042
     Dates: start: 20120216, end: 20120216
  2. GADAVIST [Suspect]
     Indication: PANCREATIC CYST

REACTIONS (3)
  - URTICARIA [None]
  - PRURITUS GENERALISED [None]
  - RASH [None]
